FAERS Safety Report 21067238 (Version 2)
Quarter: 2022Q3

REPORT INFORMATION
  Report Type: Spontaneous
  Country: IE (occurrence: IE)
  Receive Date: 20220712
  Receipt Date: 20220722
  Transmission Date: 20221027
  Serious: Yes (Other)
  Sender: FDA-Public Use
  Company Number: IE-JNJFOC-20220705727

PATIENT
  Sex: Female

DRUGS (2)
  1. SPRAVATO [Suspect]
     Active Substance: ESKETAMINE
     Indication: Depression
     Dosage: 5 DOSES
     Dates: start: 202206
  2. SPRAVATO [Suspect]
     Active Substance: ESKETAMINE
     Dosage: 6TH SESSION
     Dates: start: 20220704, end: 20220704

REACTIONS (4)
  - Drug dependence [Unknown]
  - Alcoholism [Unknown]
  - Intentional self-injury [Unknown]
  - Euphoric mood [Unknown]

NARRATIVE: CASE EVENT DATE: 20220101
